FAERS Safety Report 17739470 (Version 1)
Quarter: 2020Q2

REPORT INFORMATION
  Report Type: Spontaneous
  Country: US (occurrence: US)
  Receive Date: 20200501
  Receipt Date: 20200501
  Transmission Date: 20200714
  Serious: Yes (Other)
  Sender: FDA-Public Use
  Company Number: None

PATIENT
  Sex: Female

DRUGS (1)
  1. HUMIRA [Suspect]
     Active Substance: ADALIMUMAB
     Indication: ARTHRITIS
     Dates: start: 20200417

REACTIONS (3)
  - Incorrect dose administered [None]
  - Drug delivery system malfunction [None]
  - Incorrect dose administered by device [None]

NARRATIVE: CASE EVENT DATE: 20200417
